FAERS Safety Report 13702000 (Version 1)
Quarter: 2017Q2

REPORT INFORMATION
  Report Type: Spontaneous
  Country: US (occurrence: US)
  Receive Date: 20170629
  Receipt Date: 20170629
  Transmission Date: 20170830
  Serious: No
  Sender: FDA-Public Use
  Company Number: US-JNJFOC-20160304097

PATIENT
  Age: 14 Year
  Sex: Male
  Weight: 61.24 kg

DRUGS (1)
  1. NIZORAL A-D [Suspect]
     Active Substance: KETOCONAZOLE
     Indication: DANDRUFF
     Dosage: QUARTER SIZE DOLLOP
     Route: 061
     Dates: end: 20160301

REACTIONS (1)
  - Drug ineffective [Unknown]
